FAERS Safety Report 23933582 (Version 1)
Quarter: 2024Q2

REPORT INFORMATION
  Report Type: Spontaneous
  Country: ZA (occurrence: None)
  Receive Date: 20240603
  Receipt Date: 20240603
  Transmission Date: 20240715
  Serious: Yes (Hospitalization)
  Sender: FDA-Public Use
  Company Number: 2024A126062

PATIENT
  Age: 85 Year
  Sex: Female

DRUGS (5)
  1. DAPAGLIFLOZIN PROPANEDIOL [Suspect]
     Active Substance: DAPAGLIFLOZIN PROPANEDIOL
     Route: 048
  2. PANTOCID [Concomitant]
  3. PENTASA [Concomitant]
     Active Substance: MESALAMINE
  4. LATANOPROST [Concomitant]
     Active Substance: LATANOPROST
  5. PERINDOPRIL [Concomitant]
     Active Substance: PERINDOPRIL

REACTIONS (3)
  - Arthralgia [Unknown]
  - Renal impairment [Unknown]
  - Syncope [Unknown]
